FAERS Safety Report 18955354 (Version 1)
Quarter: 2021Q1

REPORT INFORMATION
  Report Type: Report from Study
  Country: US (occurrence: US)
  Receive Date: 20210301
  Receipt Date: 20210301
  Transmission Date: 20210420
  Serious: Yes (Life-Threatening)
  Sender: FDA-Public Use
  Company Number: US-BAYER-2021-086328

PATIENT
  Age: 74 Year
  Sex: Male
  Weight: 105 kg

DRUGS (3)
  1. ASPIRIN 325 MG [Suspect]
     Active Substance: ASPIRIN
  2. CLOPIDOGREL [Suspect]
     Active Substance: CLOPIDOGREL BISULFATE
  3. WARFARIN [Suspect]
     Active Substance: WARFARIN

REACTIONS (3)
  - Labelled drug-drug interaction medication error [None]
  - Subarachnoid haemorrhage [None]
  - Haemorrhage intracranial [None]
